FAERS Safety Report 5117729-2 (Version None)
Quarter: 2006Q3

REPORT INFORMATION
  Report Type: 
  Country: None (occurrence: None)
  Receive Date: 20060926
  Receipt Date: 20060912
  Transmission Date: 20061208
  Serious: Yes (Other)
  Sender: FDA-Public Use
  Company Number: POMP-10825

PATIENT
  Age: 10 Month
  Sex: Female
  Weight: 7 kg

DRUGS (5)
  1. MYOZYME [Suspect]
     Indication: GLYCOGEN STORAGE DISEASE TYPE II
     Dosage: 20 MG/KG Q2WKS IV
     Route: 042
     Dates: start: 20060722
  2. CAPTOPRIL [Concomitant]
  3. FUROSEMIDE [Concomitant]
  4. DIGOXIN [Concomitant]
  5. CARVEDILOL [Concomitant]

REACTIONS (3)
  - BODY TEMPERATURE DECREASED [None]
  - HYPOTENSION [None]
  - INFUSION RELATED REACTION [None]
